FAERS Safety Report 25215220 (Version 3)
Quarter: 2025Q2

REPORT INFORMATION
  Report Type: Spontaneous
  Country: US (occurrence: US)
  Receive Date: 20250418
  Receipt Date: 20250425
  Transmission Date: 20250716
  Serious: Yes (Other)
  Sender: PFIZER
  Company Number: US-PFIZER INC-202500077340

PATIENT
  Age: 77 Year
  Sex: Male

DRUGS (4)
  1. TALZENNA [Suspect]
     Active Substance: TALAZOPARIB TOSYLATE
     Indication: Prostate cancer stage IV
     Dates: end: 20250407
  2. TALZENNA [Suspect]
     Active Substance: TALAZOPARIB TOSYLATE
     Indication: Metastases to liver
     Dates: end: 20250407
  3. XTANDI [Suspect]
     Active Substance: ENZALUTAMIDE
     Indication: Prostate cancer stage IV
  4. XTANDI [Suspect]
     Active Substance: ENZALUTAMIDE
     Indication: Metastases to liver

REACTIONS (2)
  - Haemoglobin decreased [Unknown]
  - Off label use [Unknown]
